FAERS Safety Report 23190810 (Version 1)
Quarter: 2023Q4

REPORT INFORMATION
  Report Type: Spontaneous
  Country: CA (occurrence: CA)
  Receive Date: 20231116
  Receipt Date: 20231116
  Transmission Date: 20240110
  Serious: Yes (Hospitalization)
  Sender: FDA-Public Use
  Company Number: None

PATIENT
  Age: 74 Year
  Sex: Female
  Weight: 83 kg

DRUGS (13)
  1. CAPECITABINE [Suspect]
     Active Substance: CAPECITABINE
     Indication: Gallbladder neoplasm
     Dosage: 2 EVERY 1 DAYS
     Route: 048
  2. ALENDRONATE SODIUM [Concomitant]
     Active Substance: ALENDRONATE SODIUM
  3. CALCIUM CARBONATE [Concomitant]
     Active Substance: CALCIUM CARBONATE
  4. FRAGMIN [Concomitant]
     Active Substance: DALTEPARIN SODIUM
  5. FUROSEMIDE [Concomitant]
     Active Substance: FUROSEMIDE
     Route: 065
  6. HYDROMORPHONE [Concomitant]
     Active Substance: HYDROMORPHONE
  7. HYDROXYCHLOROQUINE [Concomitant]
     Active Substance: HYDROXYCHLOROQUINE
  8. LOPERAMIDE [Concomitant]
     Active Substance: LOPERAMIDE
  9. PREGABALIN [Concomitant]
     Active Substance: PREGABALIN
  10. PROCHLORPERAZINE [Concomitant]
     Active Substance: PROCHLORPERAZINE
  11. VALSARTAN [Concomitant]
     Active Substance: VALSARTAN
  12. VITAMIN D [Concomitant]
     Active Substance: VITAMIN D NOS
  13. ZOPICLONE [Concomitant]
     Active Substance: ZOPICLONE

REACTIONS (2)
  - Rhinorrhoea [Recovered/Resolved]
  - Gastrointestinal toxicity [Recovered/Resolved]
